FAERS Safety Report 18121744 (Version 1)
Quarter: 2020Q3

REPORT INFORMATION
  Report Type: Spontaneous
  Country: US (occurrence: US)
  Receive Date: 20200807
  Receipt Date: 20200807
  Transmission Date: 20201103
  Serious: Yes (Hospitalization, Other)
  Sender: FDA-Public Use
  Company Number: US-AUROBINDO-AUR-APL-2020-037589

PATIENT
  Age: 10 Year
  Sex: Male

DRUGS (5)
  1. ALBUTEROL SULFATE INHALATION SOLUTION [Suspect]
     Active Substance: ALBUTEROL SULFATE
     Indication: BRONCHOSPASM
  2. TERBUTALINE [Suspect]
     Active Substance: TERBUTALINE
     Indication: STATUS ASTHMATICUS
     Dosage: 4 MICROGRAM/KILOGRAM, EVERY MINUTE
     Route: 065
  3. TERBUTALINE [Suspect]
     Active Substance: TERBUTALINE
     Indication: BRONCHOSPASM
  4. IPRATROPIUM BROMIDE. [Concomitant]
     Active Substance: IPRATROPIUM BROMIDE
     Indication: PRODUCT USED FOR UNKNOWN INDICATION
     Dosage: UNK
     Route: 065
  5. ALBUTEROL SULFATE INHALATION SOLUTION [Suspect]
     Active Substance: ALBUTEROL SULFATE
     Indication: STATUS ASTHMATICUS
     Dosage: 20 MILLIGRAM, EVERY HOUR
     Route: 065

REACTIONS (4)
  - Wolff-Parkinson-White syndrome [Unknown]
  - Arrhythmia [Unknown]
  - Ventricular tachycardia [Unknown]
  - Unmasking of previously unidentified disease [Unknown]
